FAERS Safety Report 14171443 (Version 1)
Quarter: 2017Q4

REPORT INFORMATION
  Report Type: Spontaneous
  Country: AT (occurrence: AT)
  Receive Date: 20171108
  Receipt Date: 20171108
  Transmission Date: 20180321
  Serious: Yes (Other)
  Sender: FDA-Public Use
  Company Number: AT-PFIZER INC-2017460222

PATIENT
  Age: 70 Year
  Sex: Male

DRUGS (7)
  1. MELPERON [Concomitant]
     Active Substance: MELPERONE
  2. LOPERAMID [Concomitant]
     Active Substance: LOPERAMIDE
     Dosage: UP TO 6 TIMES PER DAY
  3. SUTENT [Concomitant]
     Active Substance: SUNITINIB MALATE
  4. SEROQUEL [Concomitant]
     Active Substance: QUETIAPINE FUMARATE
  5. DULOXETIN [Concomitant]
     Active Substance: DULOXETINE
  6. TEMESTA (LORAZEPAM) [Suspect]
     Active Substance: LORAZEPAM
  7. TRUXAL [Concomitant]
     Active Substance: CHLORPROTHIXENE

REACTIONS (5)
  - Intentional overdose [Unknown]
  - Gait disturbance [Unknown]
  - Sleep disorder [Unknown]
  - Hallucination [Unknown]
  - Confusional state [Unknown]

NARRATIVE: CASE EVENT DATE: 201703
